FAERS Safety Report 9009701 (Version 3)
Quarter: 2014Q3

REPORT INFORMATION
  Report Type: Spontaneous
  Country: US (occurrence: US)
  Receive Date: 20130110
  Receipt Date: 20140722
  Transmission Date: 20150326
  Serious: Yes (Congenital Anomaly, Other)
  Sender: FDA-Public Use
  Company Number: US-PFIZER INC-2013011060

PATIENT
  Sex: Female

DRUGS (4)
  1. ZOLOFT [Suspect]
     Active Substance: SERTRALINE HYDROCHLORIDE
     Indication: AFFECTIVE DISORDER
  2. PRENATAL VITAMINS [Concomitant]
     Active Substance: VITAMINS
     Dosage: UNK
     Route: 064
  3. ZOLOFT [Suspect]
     Active Substance: SERTRALINE HYDROCHLORIDE
     Indication: ANXIETY
     Dosage: UNK
     Route: 064
     Dates: start: 2002, end: 2009
  4. ZOLOFT [Suspect]
     Active Substance: SERTRALINE HYDROCHLORIDE
     Indication: DEPRESSION

REACTIONS (4)
  - Cleft uvula [Unknown]
  - Cleft palate [Unknown]
  - Maternal exposure timing unspecified [Unknown]
  - Tonsillar hypertrophy [Unknown]

NARRATIVE: CASE EVENT DATE: 2007
